FAERS Safety Report 5401306-X (Version None)
Quarter: 2007Q3

REPORT INFORMATION
  Report Type: 
  Country: None (occurrence: None)
  Receive Date: 20070725
  Receipt Date: 20070719
  Transmission Date: 20080115
  Serious: Yes (Other)
  Sender: FDA-Public Use
  Company Number: JPI-P-001733

PATIENT
  Age: 20 Year
  Sex: Female
  Weight: 48.5349 kg

DRUGS (10)
  1. XYREM [Suspect]
     Indication: NARCOLEPSY
     Dosage: 4.5 GM (2.25 GM, 2 IN 1 D), ORAL; 2.25 GM (2.25 GM, 1 IN 1 D), ORAL
     Route: 048
     Dates: start: 20070101
  2. XYREM [Suspect]
     Indication: NARCOLEPSY
     Dosage: 4.5 GM (2.25 GM, 2 IN 1 D), ORAL; 2.25 GM (2.25 GM, 1 IN 1 D), ORAL
     Route: 048
     Dates: start: 20070707
  3. METHYLPHENIDATE HCL [Concomitant]
  4. PAROXETINE [Concomitant]
  5. MODAFINIL [Concomitant]
  6. MULTIVITAMIN [Concomitant]
  7. FLUDROCORTISONE ACETATE [Concomitant]
  8. TOPIRAMATE [Concomitant]
  9. CETIRIZINE HCL [Concomitant]
  10. AZELASTINE HYDROCHLORIDE (AZELASTINE HYDROCHLORIDE) (SPRAY (NOT INHALA [Concomitant]

REACTIONS (14)
  - BLOOD POTASSIUM DECREASED [None]
  - CONFUSIONAL STATE [None]
  - CONVULSION [None]
  - DEHYDRATION [None]
  - DEPRESSED LEVEL OF CONSCIOUSNESS [None]
  - DYSPNOEA [None]
  - FEELING ABNORMAL [None]
  - FEELING COLD [None]
  - GAIT DISTURBANCE [None]
  - MOVEMENT DISORDER [None]
  - PALLOR [None]
  - PULSE ABSENT [None]
  - VISION BLURRED [None]
  - WEIGHT DECREASED [None]
